FAERS Safety Report 7587258-5 (Version None)
Quarter: 2011Q3

REPORT INFORMATION
  Report Type: 
  Country: None (occurrence: None)
  Receive Date: 20110701
  Receipt Date: 20110630
  Transmission Date: 20111222
  Serious: Yes (Hospitalization)
  Sender: FDA-Public Use
  Company Number: GXKR2011DE02152

PATIENT
  Age: 70 Year
  Sex: Male
  Weight: 70 kg

DRUGS (2)
  1. LEFLUNOMIDE [Suspect]
     Indication: INFLAMMATION
     Dosage: 10 MG, QD
     Route: 048
     Dates: start: 20110401, end: 20110401
  2. METHOTREXATE [Suspect]
     Indication: INFLAMMATION
     Dosage: 20 MG, QW
     Route: 058
     Dates: start: 20110401, end: 20110501

REACTIONS (2)
  - CHOLESTASIS [None]
  - GALLBLADDER CANCER [None]
